FAERS Safety Report 5458659-6 (Version None)
Quarter: 2007Q3

REPORT INFORMATION
  Report Type: 
  Country: None (occurrence: None)
  Receive Date: 20070919
  Receipt Date: 20070419
  Transmission Date: 20080115
  Serious: Yes (Other)
  Sender: FDA-Public Use
  Company Number: US-ASTRAZENECA-2007UW07759

PATIENT
  Sex: Male
  Weight: 147.7 kg

DRUGS (5)
  1. SEROQUEL [Suspect]
     Indication: BIPOLAR DISORDER
     Dosage: 200 - 400 MG
     Route: 048
     Dates: start: 19950101
  2. HALDOL [Concomitant]
  3. BUPROPION HCL [Concomitant]
  4. TRAZODONE HCL [Concomitant]
  5. CARBAMAZEPINE [Concomitant]

REACTIONS (2)
  - DIABETES MELLITUS [None]
  - PANCREATITIS [None]
